FAERS Safety Report 12526675 (Version 2)
Quarter: 2016Q3

REPORT INFORMATION
  Report Type: Report from Study
  Country: US (occurrence: US)
  Receive Date: 20160705
  Receipt Date: 20160708
  Transmission Date: 20161109
  Serious: Yes (Other)
  Sender: FDA-Public Use
  Company Number: US-GILEAD-2016-0221941

PATIENT
  Age: 46 Year
  Sex: Female
  Weight: 58.5 kg

DRUGS (9)
  1. GABAPENTIN. [Concomitant]
     Active Substance: GABAPENTIN
  2. TRUVADA [Concomitant]
     Active Substance: EMTRICITABINE\TENOFOVIR DISOPROXIL FUMARATE
  3. AMBRISENTAN [Suspect]
     Active Substance: AMBRISENTAN
     Indication: HIV INFECTION
  4. MEGACE [Concomitant]
     Active Substance: MEGESTROL ACETATE
  5. AMBRISENTAN [Suspect]
     Active Substance: AMBRISENTAN
     Indication: PULMONARY HYPERTENSION
     Dosage: 5 MG, QD
     Route: 048
  6. POTASSIUM [Concomitant]
     Active Substance: POTASSIUM
  7. PREZCOBIX [Concomitant]
     Active Substance: COBICISTAT\DARUNAVIR ETHANOLATE
  8. ATORVASTATIN [Concomitant]
     Active Substance: ATORVASTATIN
  9. LAMICTAL [Concomitant]
     Active Substance: LAMOTRIGINE

REACTIONS (1)
  - Seizure [Recovered/Resolved]
